FAERS Safety Report 14322776 (Version 1)
Quarter: 2017Q4

REPORT INFORMATION
  Report Type: Spontaneous
  Country: US (occurrence: US)
  Receive Date: 20171225
  Receipt Date: 20171225
  Transmission Date: 20180321
  Serious: Yes (Other)
  Sender: FDA-Public Use
  Company Number: US-ABBVIE-17P-163-2199008-00

PATIENT
  Sex: Female

DRUGS (2)
  1. HALDOL [Suspect]
     Active Substance: HALOPERIDOL
     Indication: PRODUCT USED FOR UNKNOWN INDICATION
     Route: 065
  2. DEPAKENE [Suspect]
     Active Substance: VALPROIC ACID
     Indication: PRODUCT USED FOR UNKNOWN INDICATION
     Route: 065

REACTIONS (10)
  - Urticaria [Unknown]
  - Focal dyscognitive seizures [Unknown]
  - Kidney enlargement [Unknown]
  - Drug hypersensitivity [Unknown]
  - Vision blurred [Unknown]
  - Palpitations [Unknown]
  - Rash [Unknown]
  - Sinus disorder [Unknown]
  - Liver injury [Unknown]
  - Heart rate irregular [Unknown]
